FAERS Safety Report 25818724 (Version 1)
Quarter: 2025Q3

REPORT INFORMATION
  Report Type: Spontaneous
  Country: US (occurrence: None)
  Receive Date: 20250918
  Receipt Date: 20250918
  Transmission Date: 20251021
  Serious: No
  Sender: FDA-CTU
  Company Number: None

PATIENT
  Age: 70 Year
  Sex: Female

DRUGS (11)
  1. DUPIXENT [Suspect]
     Active Substance: DUPILUMAB
     Indication: Pulmonary fibrosis
     Dates: start: 20250424, end: 20250901
  2. ALBUTEROL SULFATE [Concomitant]
     Active Substance: ALBUTEROL SULFATE
  3. ATORVASTATIN [Concomitant]
     Active Substance: ATORVASTATIN
  4. Oxybutinin 5mg [Concomitant]
  5. PREDNISONE [Concomitant]
     Active Substance: PREDNISONE
  6. LORATADINE [Concomitant]
     Active Substance: LORATADINE
  7. ALEVE [Concomitant]
     Active Substance: NAPROXEN SODIUM
  8. Norco 10/325mg [Concomitant]
  9. VITAMIN B12 [Concomitant]
     Active Substance: CYANOCOBALAMIN
  10. VITAMIN D3 [Concomitant]
     Active Substance: CHOLECALCIFEROL
  11. VITAMIN C [Concomitant]
     Active Substance: ASCORBIC ACID

REACTIONS (4)
  - Pneumonia [None]
  - Bacterial infection [None]
  - Fungal infection [None]
  - Treatment failure [None]

NARRATIVE: CASE EVENT DATE: 20250901
